FAERS Safety Report 4403729-4 (Version None)
Quarter: 2004Q3

REPORT INFORMATION
  Report Type: 
  Country: None (occurrence: None)
  Receive Date: 20040719
  Receipt Date: 20040706
  Transmission Date: 20050211
  Serious: Yes (Other)
  Sender: FDA-Public Use
  Company Number: HQWYE334102APR04

PATIENT
  Age: 82 Year
  Sex: Male

DRUGS (8)
  1. TAZOCIN (PIPERACILLIN/TAZOBACTAM, INJECTION) [Suspect]
     Indication: SEPSIS
     Dosage: 5 GRAMS DAILY
     Route: 041
     Dates: start: 20030910, end: 20030911
  2. CHLORMADINONE ACETATE (CHLORMADINONE ACETATE) [Concomitant]
  3. ALLORINE (ALLOPURINOL) [Concomitant]
  4. LOXONIN (LOXOPROFEN SODIUM) [Concomitant]
  5. SUMLIN (CARBAZOCHROME SODIUM SULFONATE) [Concomitant]
  6. FAMOTIDINE [Concomitant]
  7. ALBUMINAR (ALBUMIN NORMAL HUMAN SERUM) [Concomitant]
  8. DOPAMINE HCL [Concomitant]

REACTIONS (6)
  - ASPARTATE AMINOTRANSFERASE INCREASED [None]
  - BLOOD LACTATE DEHYDROGENASE INCREASED [None]
  - DISEASE PROGRESSION [None]
  - HEPATIC FUNCTION ABNORMAL [None]
  - RENAL IMPAIRMENT [None]
  - SEPSIS [None]
